FAERS Safety Report 13274316 (Version 11)
Quarter: 2018Q2

REPORT INFORMATION
  Report Type: Spontaneous
  Country: US (occurrence: US)
  Receive Date: 20170227
  Receipt Date: 20180628
  Transmission Date: 20180711
  Serious: Yes (Hospitalization, Disabling, Other)
  Sender: FDA-Public Use
  Company Number: US-009507513-1702USA011517

PATIENT
  Sex: Female
  Weight: 99.77 kg

DRUGS (2)
  1. NUVARING [Suspect]
     Active Substance: ETHINYL ESTRADIOL\ETONOGESTREL
     Indication: CONTRACEPTION
     Dosage: 1 DF, UNK
     Route: 067
     Dates: start: 20090330, end: 200907
  2. NUVARING [Suspect]
     Active Substance: ETHINYL ESTRADIOL\ETONOGESTREL
     Indication: MENSTRUAL CYCLE MANAGEMENT
     Dosage: 1 DF, EVERY MONTH LEAVE IN PLACE 3 WEEKS, REMOVE FOR 1 WEEK
     Route: 067
     Dates: start: 20130125, end: 201502

REACTIONS (57)
  - Dyspnoea [Not Recovered/Not Resolved]
  - Lyme disease [Unknown]
  - Antiphospholipid antibodies positive [Not Recovered/Not Resolved]
  - Human papilloma virus test positive [Unknown]
  - Gastrooesophageal reflux disease [Unknown]
  - Herpes virus infection [Unknown]
  - Rubber sensitivity [Unknown]
  - Pain in extremity [Unknown]
  - Rhinitis allergic [Unknown]
  - Back pain [Unknown]
  - Nasal septal operation [Unknown]
  - Pulmonary embolism [Not Recovered/Not Resolved]
  - Atrophy [Unknown]
  - Product use in unapproved indication [Unknown]
  - Rathke^s cleft cyst [Unknown]
  - Productive cough [Unknown]
  - Inappropriate schedule of drug administration [Unknown]
  - Abnormal withdrawal bleeding [Unknown]
  - Polycystic ovaries [Unknown]
  - Arthritis [Unknown]
  - Adenotonsillectomy [Unknown]
  - Demyelination [Unknown]
  - Drug hypersensitivity [Unknown]
  - Urticaria [Unknown]
  - Contusion [Unknown]
  - Sinusitis [Unknown]
  - Contusion [Unknown]
  - Swelling [Unknown]
  - Thrombosis [Unknown]
  - Menorrhagia [Unknown]
  - Hirsutism [Unknown]
  - Investigation abnormal [Unknown]
  - Chest discomfort [Unknown]
  - Dyspnoea [Unknown]
  - Abortion spontaneous [Recovered/Resolved]
  - Chest pain [Unknown]
  - Hernia [Unknown]
  - Viral infection [Unknown]
  - Palpitations [Unknown]
  - Intentional medical device removal by patient [Unknown]
  - Abdominal pain lower [Unknown]
  - Menorrhagia [Not Recovered/Not Resolved]
  - Hypoaesthesia [Recovered/Resolved]
  - Influenza like illness [Unknown]
  - Pain in extremity [Unknown]
  - Polycystic ovaries [Unknown]
  - Cervical dysplasia [Unknown]
  - Dizziness [Unknown]
  - Seasonal allergy [Unknown]
  - Ligament injury [Unknown]
  - Cholecystectomy [Unknown]
  - Galactorrhoea [Unknown]
  - Pituitary tumour benign [Unknown]
  - Chest pain [Unknown]
  - Dizziness [Unknown]
  - Vulvovaginal discomfort [Recovered/Resolved]
  - Maternal exposure before pregnancy [Recovered/Resolved]

NARRATIVE: CASE EVENT DATE: 20090525
